FAERS Safety Report 8252375-3 (Version None)
Quarter: 2012Q2

REPORT INFORMATION
  Report Type: 
  Country: None (occurrence: None)
  Receive Date: 20120402
  Receipt Date: 20110527
  Transmission Date: 20120825
  Serious: No
  Sender: FDA-Public Use
  Company Number: US-ABBOTT-11P-163-0804618-00

PATIENT
  Sex: Male
  Weight: 95 kg

DRUGS (1)
  1. TESTOSTERONE [Suspect]
     Indication: BLOOD TESTOSTERONE DECREASED
     Dosage: DAILY DOSE:  UNKNOWN, AS USED: 1; FREQUENCY: ONCE A DAY
     Route: 062
     Dates: start: 20110301

REACTIONS (1)
  - HAIR GROWTH ABNORMAL [None]
